FAERS Safety Report 23099399 (Version 4)
Quarter: 2024Q3

REPORT INFORMATION
  Report Type: Report from Study
  Country: CA (occurrence: CA)
  Receive Date: 20231024
  Receipt Date: 20240708
  Transmission Date: 20241017
  Serious: Yes (Hospitalization, Other)
  Sender: IPSEN
  Company Number: CA-KOREA IPSEN Pharma-2023-18238

PATIENT
  Age: 50 Year
  Sex: Female

DRUGS (4)
  1. LANREOTIDE ACETATE [Suspect]
     Active Substance: LANREOTIDE ACETATE
     Indication: Carcinoid syndrome
     Route: 058
     Dates: start: 20230530
  2. SYNTHROID [Concomitant]
     Active Substance: LEVOTHYROXINE SODIUM
  3. FERROUS SULFATE [Concomitant]
     Active Substance: FERROUS SULFATE
     Dosage: 300MG PO DAILY,
     Route: 048
  4. METFORMIN [Concomitant]
     Active Substance: METFORMIN HYDROCHLORIDE
     Dosage: 500MO PO DAILY,
     Route: 048

REACTIONS (9)
  - Type 2 diabetes mellitus [Unknown]
  - Blood calcium decreased [Not Recovered/Not Resolved]
  - Blood test abnormal [Unknown]
  - Fatigue [Unknown]
  - Malaise [Unknown]
  - Blood iron decreased [Unknown]
  - Hypoaesthesia [Not Recovered/Not Resolved]
  - Thyroid hormones increased [Not Recovered/Not Resolved]
  - Off label use [Unknown]

NARRATIVE: CASE EVENT DATE: 20230101
